FAERS Safety Report 8246479-9 (Version None)
Quarter: 2012Q1

REPORT INFORMATION
  Report Type: 
  Country: None (occurrence: None)
  Receive Date: 20120330
  Receipt Date: 20120327
  Transmission Date: 20120608
  Serious: Yes (Life-Threatening)
  Sender: FDA-Public Use
  Company Number: JP-SANOFI-AVENTIS-2011SA077450

PATIENT
  Age: 77 Year
  Sex: Female
  Weight: 66 kg

DRUGS (24)
  1. NITROGLYCERIN [Concomitant]
     Route: 048
  2. DEXAMETHASONE [Concomitant]
     Route: 048
  3. AVASTIN [Concomitant]
     Indication: LARGE INTESTINE CARCINOMA
     Route: 041
     Dates: end: 20110602
  4. AMBROXOL HYDROCHLORIDE [Concomitant]
     Route: 048
  5. ALDECIN-AQ- [Concomitant]
     Dosage: ROUTE: INTRANASAL
  6. HALCION [Concomitant]
     Route: 048
  7. MAGNESIUM OXIDE [Concomitant]
     Route: 048
  8. CODEINE PHOSPHATE [Concomitant]
     Route: 048
  9. DEPAS [Concomitant]
     Route: 048
  10. MOTILIUM [Concomitant]
     Dosage: ROUTE: PR
  11. OLMESARTAN MEDOXOMIL [Concomitant]
     Route: 048
  12. MERISLON [Concomitant]
     Route: 048
  13. FLUTICASONE PROPIONATE [Concomitant]
     Dosage: ROUTE: IH
     Route: 055
  14. CEFAZOLIN SODIUM [Concomitant]
     Route: 048
  15. ASPIRIN [Concomitant]
     Route: 048
  16. EMEND [Concomitant]
     Indication: PROPHYLAXIS
     Dosage: DOSE:125-80
     Route: 048
  17. CALBLOCK [Concomitant]
     Route: 048
  18. LEUCOVORIN CALCIUM [Concomitant]
     Indication: LARGE INTESTINE CARCINOMA
     Route: 041
     Dates: end: 20110603
  19. FLUOROURACIL [Concomitant]
     Route: 040
     Dates: end: 20110603
  20. PRIMPERAN TAB [Concomitant]
     Indication: PREMEDICATION
     Route: 041
     Dates: end: 20110602
  21. POSTERISAN [Concomitant]
     Route: 048
  22. OXALIPLATIN [Suspect]
     Indication: LARGE INTESTINE CARCINOMA
     Route: 041
     Dates: end: 20110602
  23. FLUOROURACIL [Concomitant]
     Indication: LARGE INTESTINE CARCINOMA
     Route: 041
     Dates: end: 20110603
  24. ZYRTEC [Concomitant]
     Route: 048

REACTIONS (3)
  - CONVULSION [None]
  - VOMITING [None]
  - HYPONATRAEMIA [None]
